FAERS Safety Report 16797411 (Version 4)
Quarter: 2020Q2

REPORT INFORMATION
  Report Type: Report from Study
  Country: None (occurrence: CO)
  Receive Date: 20190912
  Receipt Date: 20200624
  Transmission Date: 20200713
  Serious: Yes (Other)
  Sender: FDA-Public Use
  Company Number: CO-ABBVIE-19K-036-2919719-00

PATIENT
  Sex: Female

DRUGS (2)
  1. HUMIRA [Suspect]
     Active Substance: ADALIMUMAB
     Indication: ANKYLOSING SPONDYLITIS
     Route: 058
     Dates: start: 20110331
  2. HUMIRA [Suspect]
     Active Substance: ADALIMUMAB
     Indication: ANKYLOSING SPONDYLITIS
     Route: 058
     Dates: end: 20190529

REACTIONS (6)
  - Gastrointestinal disorder [Unknown]
  - Crohn^s disease [Unknown]
  - Proctalgia [Unknown]
  - Hepatic steatosis [Unknown]
  - Diarrhoea [Unknown]
  - Gastritis [Unknown]

NARRATIVE: CASE EVENT DATE: 2015
